FAERS Safety Report 6128968-6 (Version None)
Quarter: 2009Q1

REPORT INFORMATION
  Report Type: 
  Country: None (occurrence: None)
  Receive Date: 20090324
  Receipt Date: 20090317
  Transmission Date: 20090719
  Serious: Yes (Hospitalization)
  Sender: FDA-Public Use
  Company Number: PHHY2009GB02813

PATIENT
  Sex: Female

DRUGS (3)
  1. CLOZARIL [Suspect]
     Indication: SCHIZOPHRENIA
     Dosage: UNK
     Dates: start: 20030227
  2. OXYBUTYNIN CHLORIDE [Suspect]
  3. EPILIM [Suspect]

REACTIONS (1)
  - ACCIDENTAL OVERDOSE [None]
